FAERS Safety Report 9078191 (Version 1)
Quarter: 2013Q1

REPORT INFORMATION
  Report Type: Report from Study
  Country: US (occurrence: US)
  Receive Date: 20130130
  Receipt Date: 20130130
  Transmission Date: 20140127
  Serious: No
  Sender: FDA-Public Use
  Company Number: US-ABBOTT-12P-163-0971451-00

PATIENT
  Age: 54 Year
  Sex: Male

DRUGS (3)
  1. HUMIRA 40 MG/0.8 ML PEN [Suspect]
     Indication: PSORIASIS
     Dates: start: 20120712, end: 20120712
  2. HUMIRA 40 MG/0.8 ML PEN [Suspect]
     Dates: start: 20120719, end: 20120719
  3. HUMIRA 40 MG/0.8 ML PEN [Suspect]

REACTIONS (1)
  - Erythema [Recovered/Resolved]
